FAERS Safety Report 17008662 (Version 1)
Quarter: 2019Q4

REPORT INFORMATION
  Report Type: Spontaneous
  Country: FR (occurrence: FR)
  Receive Date: 20191108
  Receipt Date: 20191108
  Transmission Date: 20200122
  Serious: Yes (Hospitalization)
  Sender: FDA-Public Use
  Company Number: FR-TEVA-2019-FR-1134243

PATIENT
  Age: 69 Year
  Sex: Female

DRUGS (1)
  1. IBUPROFENE [Suspect]
     Active Substance: IBUPROFEN
     Indication: PAIN
     Dosage: 800 MG PER DAY
     Route: 048
     Dates: start: 20190830, end: 20190904

REACTIONS (1)
  - Rectal perforation [Recovered/Resolved with Sequelae]

NARRATIVE: CASE EVENT DATE: 20190907
